FAERS Safety Report 11180879 (Version 2)
Quarter: 2015Q3

REPORT INFORMATION
  Report Type: Spontaneous
  Country: US (occurrence: US)
  Receive Date: 20150611
  Receipt Date: 20150814
  Transmission Date: 20151125
  Serious: No
  Sender: FDA-Public Use
  Company Number: US-GLAXOSMITHKLINE-US2015079370

PATIENT
  Sex: Female

DRUGS (2)
  1. NICORETTE [Suspect]
     Active Substance: NICOTINE
     Dosage: 4 MG, UNK
     Dates: start: 20150601
  2. NICORETTE [Suspect]
     Active Substance: NICOTINE
     Indication: SMOKING CESSATION THERAPY
     Dosage: 4 MG, UNK

REACTIONS (5)
  - Glossodynia [Recovered/Resolved]
  - Tongue discolouration [Unknown]
  - Product quality issue [Unknown]
  - Ageusia [Unknown]
  - Drug ineffective [Unknown]
